FAERS Safety Report 23153028 (Version 1)
Quarter: 2023Q4

REPORT INFORMATION
  Report Type: Report from Study
  Country: None (occurrence: US)
  Receive Date: 20231107
  Receipt Date: 20231107
  Transmission Date: 20240110
  Serious: Yes (Life-Threatening, Other)
  Sender: FDA-Public Use
  Company Number: US-Pharmascience Inc.-2147883

PATIENT
  Age: 26 Year
  Sex: Male
  Weight: 68 kg

DRUGS (44)
  1. BUSULFAN [Suspect]
     Active Substance: BUSULFAN
     Route: 042
     Dates: start: 20230725, end: 20230729
  2. OXYCODONE. [Concomitant]
     Active Substance: OXYCODONE HYDROCHLORIDE
  3. OXYCODONE. [Concomitant]
     Active Substance: OXYCODONE HYDROCHLORIDE
     Dates: start: 20221108
  4. MELOXICAM [Concomitant]
     Active Substance: MELOXICAM
     Dates: start: 20230725
  5. DILAUDID [Concomitant]
     Active Substance: HYDROMORPHONE HYDROCHLORIDE
     Dates: start: 20230103
  6. DRONABINOL [Concomitant]
     Active Substance: DRONABINOL
     Dates: start: 20230103
  7. NAPROXEN [Concomitant]
     Active Substance: NAPROXEN
     Dates: start: 20221021
  8. ACETAMINOPHEN [Concomitant]
     Active Substance: ACETAMINOPHEN
     Dates: start: 20220725
  9. IBUPROFEN [Concomitant]
     Active Substance: IBUPROFEN
     Dates: start: 20230724
  10. MORPHINE SULFATE [Concomitant]
     Active Substance: MORPHINE SULFATE
     Dates: start: 20230809
  11. GABAPENTIN [Concomitant]
     Active Substance: GABAPENTIN
     Dates: start: 20220722
  12. MIRALAX [Concomitant]
     Active Substance: POLYETHYLENE GLYCOL 3350
     Dates: start: 20221108
  13. LACTULOSE [Concomitant]
     Active Substance: LACTULOSE
     Dates: start: 20230804
  14. URSODIOL [Concomitant]
     Active Substance: URSODIOL
     Dates: start: 20230725
  15. CEFEPIME [Concomitant]
     Active Substance: CEFEPIME HYDROCHLORIDE
     Dates: start: 20230724
  16. NALOXONE HCL [Concomitant]
     Active Substance: NALOXONE HYDROCHLORIDE
     Dates: start: 20221021
  17. DIPHENHYDRAMINE [Concomitant]
     Active Substance: DIPHENHYDRAMINE
     Dates: start: 20230725
  18. HEPARIN [Concomitant]
     Active Substance: HEPARIN SODIUM
     Dates: start: 20230725
  19. MICAFUNGIN [Concomitant]
     Active Substance: MICAFUNGIN SODIUM
     Dates: start: 20230806
  20. PENICILLIN V POTASSIUM [Concomitant]
     Active Substance: PENICILLIN V POTASSIUM
     Dates: start: 20230725
  21. VALACYCLOVIR HYDROCHLORIDE [Concomitant]
     Active Substance: VALACYCLOVIR HYDROCHLORIDE
     Dates: start: 20230801
  22. SUCRALFATE [Concomitant]
     Active Substance: SUCRALFATE
     Dates: start: 20230806
  23. CHOLECALCIFEROL [Concomitant]
     Active Substance: CHOLECALCIFEROL
     Dates: start: 20230725
  24. FUROSEMIDE [Concomitant]
     Active Substance: FUROSEMIDE
     Dates: start: 20230811, end: 20230813
  25. FUROSEMIDE [Concomitant]
     Active Substance: FUROSEMIDE
     Dates: start: 20230813, end: 20230825
  26. VANCOMYCIN HYDROCHLORIDE [Concomitant]
     Active Substance: VANCOMYCIN HYDROCHLORIDE
     Dates: start: 20230812
  27. FAMOTIDINE [Concomitant]
     Active Substance: FAMOTIDINE
     Dates: start: 20230812
  28. DOCUSATE [Concomitant]
     Active Substance: DOCUSATE
     Dates: start: 20231021
  29. SENNA [Concomitant]
     Active Substance: SENNA LEAF\SENNOSIDES\SENNOSIDES A AND B
     Dates: start: 20221111
  30. VITAMIN D [Concomitant]
     Active Substance: VITAMIN D NOS
     Dates: start: 20211026
  31. DULOXETINE [Concomitant]
     Active Substance: DULOXETINE
     Dates: start: 20221021
  32. ALBUTEROL [Concomitant]
     Active Substance: ALBUTEROL
  33. ADVAIR HFA [Concomitant]
     Active Substance: FLUTICASONE PROPIONATE\SALMETEROL XINAFOATE
     Dates: start: 20230727
  34. ADVAIR DISKUS [Concomitant]
     Active Substance: FLUTICASONE PROPIONATE\SALMETEROL XINAFOATE
     Dates: start: 20230724
  35. FLONASE [Concomitant]
     Active Substance: FLUTICASONE PROPIONATE
     Dates: start: 20230725
  36. SINGULAIR [Concomitant]
     Active Substance: MONTELUKAST SODIUM
     Dates: start: 20230725
  37. SYMBICORT [Concomitant]
     Active Substance: BUDESONIDE\FORMOTEROL FUMARATE DIHYDRATE
     Dates: start: 20230725
  38. LIDOCAINE [Concomitant]
     Active Substance: LIDOCAINE
     Dates: start: 20230725
  39. LORAZEPAM [Concomitant]
     Active Substance: LORAZEPAM
     Dates: start: 20230725
  40. ONDANSETRON [Concomitant]
     Active Substance: ONDANSETRON
     Dates: start: 20230727
  41. FOLIC ACID [Concomitant]
     Active Substance: FOLIC ACID
     Dates: start: 20210515
  42. AQUAPHOR HEALING [Concomitant]
     Active Substance: PETROLATUM
     Dates: start: 20230725
  43. HYDROCORTISONE ACETATE [Concomitant]
     Active Substance: HYDROCORTISONE ACETATE
     Dates: start: 20230725
  44. EPINEPHRINE [Concomitant]
     Active Substance: EPINEPHRINE
     Dates: start: 20230725

REACTIONS (3)
  - Refractoriness to platelet transfusion [Unknown]
  - Venoocclusive liver disease [Recovered/Resolved]
  - Thrombocytopenia [Unknown]
